FAERS Safety Report 11699081 (Version 2)
Quarter: 2015Q4

REPORT INFORMATION
  Report Type: Spontaneous
  Country: US (occurrence: US)
  Receive Date: 20151104
  Receipt Date: 20151110
  Transmission Date: 20160304
  Serious: No
  Sender: FDA-Public Use
  Company Number: US-ELI_LILLY_AND_COMPANY-US201012003810

PATIENT
  Age: 88 Year
  Sex: Female

DRUGS (7)
  1. FORTEO [Suspect]
     Active Substance: TERIPARATIDE
     Indication: OSTEOPOROSIS
     Dosage: 20 UG, DAILY (1/D)
     Route: 065
     Dates: start: 20101206, end: 20101207
  2. FORTEO [Suspect]
     Active Substance: TERIPARATIDE
     Dosage: 20 UG, DAILY (1/D)
  3. VITAMIN D [Concomitant]
     Active Substance: CHOLECALCIFEROL
     Dates: start: 20101203
  4. FORTEO [Suspect]
     Active Substance: TERIPARATIDE
     Dosage: 20 UG, DAILY (1/D)
     Dates: start: 20110104
  5. FORTEO [Suspect]
     Active Substance: TERIPARATIDE
     Dosage: 20 UG, QD
     Route: 065
  6. FORTEO [Suspect]
     Active Substance: TERIPARATIDE
     Dosage: 20 UG, QD
  7. CALCIUM [Concomitant]
     Active Substance: CALCIUM
     Dates: start: 20101203

REACTIONS (21)
  - Anxiety [Unknown]
  - Rhinorrhoea [Unknown]
  - Body surface area decreased [Unknown]
  - Blood urine present [Unknown]
  - Weight decreased [Unknown]
  - Malaise [Unknown]
  - Back pain [Unknown]
  - Discomfort [Unknown]
  - Dry skin [Unknown]
  - Limb discomfort [Unknown]
  - Pain [Unknown]
  - Constipation [Recovering/Resolving]
  - Influenza like illness [Unknown]
  - Rhinitis allergic [Unknown]
  - Throat irritation [Recovered/Resolved]
  - Pruritus [Unknown]
  - Dandruff [Recovering/Resolving]
  - Urinary tract infection [Unknown]
  - Nasopharyngitis [Unknown]
  - Bone pain [Unknown]
  - Fatigue [Unknown]

NARRATIVE: CASE EVENT DATE: 20101207
